FAERS Safety Report 7382731-7 (Version None)
Quarter: 2011Q1

REPORT INFORMATION
  Report Type: 
  Country: None (occurrence: None)
  Receive Date: 20110330
  Receipt Date: 20110322
  Transmission Date: 20110831
  Serious: No
  Sender: FDA-Public Use
  Company Number: US-BIOGENIDEC-2010BI043869

PATIENT
  Age: 47 Year
  Sex: Female

DRUGS (5)
  1. TYSABRI [Suspect]
     Indication: MULTIPLE SCLEROSIS
     Route: 042
     Dates: start: 20101202, end: 20110301
  2. AVONEX [Concomitant]
     Route: 030
     Dates: start: 20100701
  3. AVONEX [Concomitant]
     Route: 030
  4. AVONEX [Concomitant]
     Indication: MULTIPLE SCLEROSIS
     Route: 030
     Dates: start: 20050801
  5. AVONEX [Concomitant]
     Route: 030
     Dates: start: 20060801

REACTIONS (3)
  - PAIN [None]
  - BLEPHAROSPASM [None]
  - HEADACHE [None]
